FAERS Safety Report 9087168 (Version 1)
Quarter: 2013Q1

REPORT INFORMATION
  Report Type: Spontaneous
  Country: GB (occurrence: GB)
  Receive Date: 20130217
  Receipt Date: 20130217
  Transmission Date: 20140127
  Serious: Yes (Congenital Anomaly)
  Sender: FDA-Public Use
  Company Number: GB-TEVA-385069ISR

PATIENT
  Sex: Male

DRUGS (10)
  1. HALOPERIDOL [Suspect]
  2. ISTIN [Suspect]
  3. DISIPAL [Suspect]
  4. DEPIXOL [Suspect]
  5. VALIUM [Suspect]
  6. RELACTON-C [Suspect]
  7. KEMADRIN [Suspect]
  8. NORMAXIN [Suspect]
  9. SURMONTIL [Suspect]
  10. SPARINE [Suspect]

REACTIONS (3)
  - Blindness transient [Unknown]
  - Maternal exposure before pregnancy [Unknown]
  - Learning disability [Unknown]
